FAERS Safety Report 7510217-5 (Version None)
Quarter: 2011Q2

REPORT INFORMATION
  Report Type: 
  Country: None (occurrence: None)
  Receive Date: 20110527
  Receipt Date: 20100607
  Transmission Date: 20111010
  Serious: No
  Sender: FDA-Public Use
  Company Number: US-BAYER-201025184NA

PATIENT
  Sex: Female

DRUGS (2)
  1. AVELOX [Suspect]
     Indication: SINUS DISORDER
     Dosage: 400 MG, QD
     Route: 048
  2. AVELOX [Suspect]
     Indication: BRONCHITIS

REACTIONS (1)
  - URTICARIA [None]
